FAERS Safety Report 12674823 (Version 2)
Quarter: 2016Q3

REPORT INFORMATION
  Report Type: Spontaneous
  Country: US (occurrence: US)
  Receive Date: 20160822
  Receipt Date: 20160913
  Transmission Date: 20161109
  Serious: No
  Sender: FDA-Public Use
  Company Number: US-RECKITT BENCKISER HEALTHCARE INT LIMITED-RB-87459-2016

PATIENT
  Age: 83 Year
  Sex: Female

DRUGS (1)
  1. MUCINEX [Suspect]
     Active Substance: GUAIFENESIN
     Indication: PRODUCTIVE COUGH
     Dosage: TOOK ONE TABLET ON 17-MAY-2016 AND 1 TABLET ON 18-MAY-2016
     Route: 065
     Dates: start: 20160517

REACTIONS (1)
  - Drug ineffective [Not Recovered/Not Resolved]
